FAERS Safety Report 15396911 (Version 1)
Quarter: 2018Q3

REPORT INFORMATION
  Report Type: Spontaneous
  Country: US (occurrence: US)
  Receive Date: 20180913
  Receipt Date: 20180913
  Transmission Date: 20181010
  Serious: No
  Sender: FDA-Public Use
  Company Number: None

PATIENT
  Age: 50 Year
  Sex: Female
  Weight: 81 kg

DRUGS (1)
  1. ESTRADIOL TRANSDERMAL SYSTEM [Suspect]
     Active Substance: ESTRADIOL
     Indication: MENOPAUSE
     Dosage: ?          QUANTITY:1 PATCH(ES);OTHER FREQUENCY:TWICE A WEEK;?
     Route: 062
     Dates: start: 20180909, end: 20180913

REACTIONS (2)
  - Product substitution issue [None]
  - Hot flush [None]

NARRATIVE: CASE EVENT DATE: 20180911
